FAERS Safety Report 18252737 (Version 1)
Quarter: 2020Q3

REPORT INFORMATION
  Report Type: Spontaneous
  Country: US (occurrence: US)
  Receive Date: 20200910
  Receipt Date: 20200910
  Transmission Date: 20201103
  Serious: Yes (Death)
  Sender: FDA-Public Use
  Company Number: None

PATIENT
  Age: 96 Year
  Sex: Male

DRUGS (10)
  1. FUROSEMIDE 40 MG [Concomitant]
     Active Substance: FUROSEMIDE
     Dates: start: 20190909, end: 20200901
  2. ZYTIGA [Suspect]
     Active Substance: ABIRATERONE ACETATE
     Indication: PROSTATE CANCER
     Route: 048
     Dates: start: 20190912, end: 20200901
  3. SIMVASTATIN 40MG [Concomitant]
     Active Substance: SIMVASTATIN
     Dates: start: 20190909, end: 20200901
  4. SAW PALMETTO 160 MG [Concomitant]
     Dates: start: 20190909, end: 20200901
  5. VITAMIN B12 [Concomitant]
     Active Substance: CYANOCOBALAMIN
     Dates: start: 20190909, end: 20200901
  6. ALLOPURINOL 300 MG [Concomitant]
     Active Substance: ALLOPURINOL
     Dates: start: 20170705, end: 20200901
  7. AMLODIPINE [Concomitant]
     Active Substance: AMLODIPINE BESYLATE
     Dates: start: 20190909, end: 20200901
  8. NEGESTROL ACETATE 40MG [Concomitant]
     Dates: start: 20190909, end: 20200901
  9. GABAPENTIN 100MG [Concomitant]
     Active Substance: GABAPENTIN
     Dates: start: 20190909, end: 20200901
  10. TRAMADOL 50 MG [Concomitant]
     Active Substance: TRAMADOL
     Dates: start: 20190909, end: 20200901

REACTIONS (1)
  - Death [None]
